FAERS Safety Report 5574075-0 (Version None)
Quarter: 2007Q4

REPORT INFORMATION
  Report Type: 
  Country: None (occurrence: None)
  Receive Date: 20071221
  Receipt Date: 20071211
  Transmission Date: 20080405
  Serious: Yes (Other)
  Sender: FDA-Public Use
  Company Number: 100#02#2007-05304

PATIENT
  Age: 70 Year
  Sex: Male

DRUGS (8)
  1. TRAMADOL HCL [Suspect]
     Indication: DRUG USE FOR UNKNOWN INDICATION
  2. CLOPIDOGREL (CLOPIDOGREL) (CLOPIDOGREL) [Concomitant]
  3. METFORMIN (METFORMIN) (METFORMIN) [Concomitant]
  4. RAMIPRIL [Concomitant]
  5. CELIPROLOL (CELIPROLOL) (CELIPROLOL) [Concomitant]
  6. DILTIAZEM [Concomitant]
  7. ATORVASTATIN (ATORVASTATIN) (ATORVASTATIN) [Concomitant]
  8. ACETYLSALICYLIC ACID SRT [Concomitant]

REACTIONS (1)
  - LOSS OF CONSCIOUSNESS [None]
